FAERS Safety Report 4365479-2 (Version None)
Quarter: 2004Q2

REPORT INFORMATION
  Report Type: 
  Country: None (occurrence: None)
  Receive Date: 20040526
  Receipt Date: 20040517
  Transmission Date: 20050107
  Serious: Yes (Hospitalization)
  Sender: FDA-Public Use
  Company Number: GB-BRISTOL-MYERS SQUIBB COMPANY-12594263

PATIENT
  Age: 86 Year
  Sex: Male

DRUGS (5)
  1. METFORMIN HCL [Suspect]
     Indication: DIABETES MELLITUS
     Route: 048
  2. CO-CARELDOPA [Concomitant]
     Indication: PARKINSON'S DISEASE
     Dosage: DOSE:  50/200 MILLIGRAMS
     Route: 048
  3. FUROSEMIDE [Concomitant]
     Route: 048
  4. GLICLAZIDE [Concomitant]
     Indication: DIABETES MELLITUS
     Route: 048
  5. FLUOXETINE [Concomitant]
     Indication: DEPRESSION
     Route: 048

REACTIONS (2)
  - LACTIC ACIDOSIS [None]
  - SEPSIS [None]
